FAERS Safety Report 22399541 (Version 1)
Quarter: 2023Q2

REPORT INFORMATION
  Report Type: Spontaneous
  Country: CN (occurrence: CN)
  Receive Date: 20230602
  Receipt Date: 20230602
  Transmission Date: 20230721
  Serious: Yes (Hospitalization)
  Sender: FDA-Public Use
  Company Number: CN-DSJP-DSJ-2023-121554

PATIENT
  Age: 59 Year
  Sex: Male
  Weight: 89.5 kg

DRUGS (6)
  1. OLMESARTAN MEDOXOMIL [Suspect]
     Active Substance: OLMESARTAN MEDOXOMIL
     Indication: Hypertension
     Dosage: 1 DF, QD (MORE THAN 1 MONTH, 2020-2021 (IRREGULAR MEDICATION))
     Route: 065
     Dates: start: 2020
  2. OLMESARTAN MEDOXOMIL [Suspect]
     Active Substance: OLMESARTAN MEDOXOMIL
     Dosage: 1 DF, QD
     Route: 065
     Dates: start: 202211, end: 202304
  3. LIPITOR [Concomitant]
     Active Substance: ATORVASTATIN CALCIUM
     Indication: Lipids increased
     Dosage: 1 DF, QD
     Route: 065
  4. DIPINE [Concomitant]
     Indication: Hypertension
     Dosage: UNK (ABOUT HALF A MONTH TO MORE THAN 1 MONTH)
     Route: 065
     Dates: start: 2020
  5. NORVASC [Concomitant]
     Active Substance: AMLODIPINE BESYLATE
     Indication: Hypertension
     Dosage: 1 DF, QD (ABOUT 1 MONTH AFTER NOV-2022)
     Route: 065
     Dates: start: 202211, end: 2022
  6. NORVASC [Concomitant]
     Active Substance: AMLODIPINE BESYLATE
     Dosage: 0.5 DF, QD ((HALF A TABLET/QD)(ABOUT 1 MONTH AFTER NOV-2022)
     Route: 065
     Dates: start: 2022

REACTIONS (7)
  - Vestibular disorder [Unknown]
  - Dizziness [Recovered/Resolved]
  - Hypotension [Unknown]
  - Chest pain [Recovered/Resolved]
  - Drug ineffective [Unknown]
  - Intentional dose omission [Unknown]
  - Product use issue [Unknown]

NARRATIVE: CASE EVENT DATE: 20200101
